FAERS Safety Report 4799272-3 (Version None)
Quarter: 2005Q4

REPORT INFORMATION
  Report Type: 
  Country: None (occurrence: None)
  Receive Date: 20051013
  Receipt Date: 20050120
  Transmission Date: 20060501
  Serious: Yes (Other)
  Sender: FDA-Public Use
  Company Number: GBS041216102

PATIENT
  Age: 70 Year
  Sex: Male
  Weight: 75 kg

DRUGS (7)
  1. GEMZAR [Suspect]
     Indication: PANCREATIC CARCINOMA
     Dosage: 1800 MG/2 OTHER IV
     Route: 042
     Dates: start: 20041112, end: 20041126
  2. MORPHINE SULFATE [Concomitant]
  3. MOVICOL [Concomitant]
  4. CELEBREX [Concomitant]
  5. LANSOPRAZOLE [Concomitant]
  6. CALOGEN           (ARACHIS HYPOGAEA OIL) [Concomitant]
  7. MEGACE            (MEGESTEROL ACETATE) [Concomitant]

REACTIONS (6)
  - ALANINE AMINOTRANSFERASE INCREASED [None]
  - ASPARTATE AMINOTRANSFERASE INCREASED [None]
  - BLOOD ALKALINE PHOSPHATASE INCREASED [None]
  - BLOOD BILIRUBIN INCREASED [None]
  - BONE MARROW TOXICITY [None]
  - GAMMA-GLUTAMYLTRANSFERASE INCREASED [None]
